FAERS Safety Report 5476353-2 (Version None)
Quarter: 2007Q3

REPORT INFORMATION
  Report Type: 
  Country: None (occurrence: None)
  Receive Date: 20070914
  Receipt Date: 20070621
  Transmission Date: 20080115
  Serious: Yes (Other)
  Sender: FDA-Public Use
  Company Number: 07-173

PATIENT
  Age: 46 Year
  Sex: Female
  Weight: 71.2147 kg

DRUGS (2)
  1. ALEVE [Suspect]
     Indication: HEADACHE
     Dosage: 440 MG, DAILY, ORAL
     Route: 048
     Dates: start: 20070613, end: 20070614
  2. HORMONE REPLACEMENT THERAPY [Concomitant]

REACTIONS (8)
  - ABDOMINAL PAIN UPPER [None]
  - CONDITION AGGRAVATED [None]
  - DRUG INEFFECTIVE [None]
  - FEELING HOT [None]
  - GASTRIC HAEMORRHAGE [None]
  - HAEMATOCHEZIA [None]
  - HEADACHE [None]
  - NAUSEA [None]
